FAERS Safety Report 10077508 (Version 2)
Quarter: 2014Q2

REPORT INFORMATION
  Report Type: Spontaneous
  Country: US (occurrence: US)
  Receive Date: 20140414
  Receipt Date: 20140414
  Transmission Date: 20141212
  Serious: No
  Sender: FDA-Public Use
  Company Number: US-BANPHARM-20131638

PATIENT
  Age: 57 Year
  Sex: Male
  Weight: 86.18 kg

DRUGS (3)
  1. ALEVE LIQUID GELS 220 MG [Suspect]
     Indication: ARTHRITIS
     Route: 048
     Dates: start: 201307, end: 201307
  2. LIPITOR [Concomitant]
  3. ATENOLOL [Concomitant]

REACTIONS (2)
  - Drug ineffective [Unknown]
  - Incorrect dose administered [Unknown]
